FAERS Safety Report 5723171-3 (Version None)
Quarter: 2008Q2

REPORT INFORMATION
  Report Type: 
  Country: None (occurrence: None)
  Receive Date: 20080430
  Receipt Date: 20080421
  Transmission Date: 20081010
  Serious: No
  Sender: FDA-Public Use
  Company Number: FR-ELI_LILLY_AND_COMPANY-FR200804001703

PATIENT
  Age: 79 Year
  Sex: Female

DRUGS (8)
  1. FORTEO [Suspect]
     Indication: OSTEOPOROSIS
     Dosage: 20 UG, DAILY (1/D)
     Route: 058
     Dates: start: 20061016, end: 20080227
  2. ULTRACET [Concomitant]
     Indication: PAIN
     Dosage: 3 D/F, DAILY (1/D)
     Route: 048
  3. LASILIX [Concomitant]
     Dosage: 1 D/F, DAILY (1/D)
     Route: 048
  4. PANTOPRAZOLE SODIUM [Concomitant]
     Dosage: 1 D/F, DAILY (1/D)
     Route: 048
  5. ISORYTHM [Concomitant]
  6. LEXOMIL [Concomitant]
     Dosage: 0.25 D/F, DAILY (1/D)
  7. SINTROM [Concomitant]
     Dosage: 0.75 D/F, OTHER
     Route: 048
  8. SINTROM [Concomitant]
     Dosage: 0.5 D/F, OTHER
     Route: 048

REACTIONS (1)
  - NO ADVERSE EVENT [None]
